FAERS Safety Report 4307551-9 (Version None)
Quarter: 2004Q1

REPORT INFORMATION
  Report Type: 
  Country: None (occurrence: None)
  Receive Date: 20040226
  Receipt Date: 20040213
  Transmission Date: 20041129
  Serious: Yes (Life-Threatening, Hospitalization, Disabling)
  Sender: FDA-Public Use
  Company Number: 2004006277

PATIENT
  Age: 42 Year
  Sex: Male
  Weight: 82 kg

DRUGS (1)
  1. RELERT (ELETRIPTAN) [Suspect]
     Indication: MIGRAINE
     Dosage: 40 MG (UNKNOWN), ORAL
     Dates: start: 20030819

REACTIONS (1)
  - CEREBRAL INFARCTION [None]
